FAERS Safety Report 6807016-6 (Version None)
Quarter: 2010Q2

REPORT INFORMATION
  Report Type: 
  Country: None (occurrence: None)
  Receive Date: 20100628
  Receipt Date: 20100628
  Transmission Date: 20101027
  Serious: No
  Sender: FDA-Public Use
  Company Number: None

PATIENT
  Sex: Female

DRUGS (1)
  1. ADDERALL XR 20 [Suspect]
     Indication: ATTENTION DEFICIT/HYPERACTIVITY DISORDER

REACTIONS (5)
  - ADVERSE REACTION [None]
  - HEADACHE [None]
  - PRODUCT COMMINGLING [None]
  - PRODUCT SUBSTITUTION ISSUE [None]
  - VISION BLURRED [None]
